FAERS Safety Report 7922387-5 (Version None)
Quarter: 2011Q4

REPORT INFORMATION
  Report Type: 
  Country: None (occurrence: None)
  Receive Date: 20111117
  Receipt Date: 20110119
  Transmission Date: 20120403
  Serious: No
  Sender: FDA-Public Use
  Company Number: US-AMGEN-USASP2011003581

PATIENT
  Age: 52 Year
  Sex: Female
  Weight: 58.957 kg

DRUGS (8)
  1. CONJUGATED ESTROGENS [Concomitant]
     Dosage: UNK
  2. ZOLPIDEM [Concomitant]
     Dosage: UNK
  3. ESCITALOPRAM OXALATE [Concomitant]
     Dosage: 20 MG, UNK
  4. MONTELUKAST SODIUM [Concomitant]
     Dosage: UNK
  5. ENBREL [Suspect]
     Indication: RHEUMATOID ARTHRITIS
     Dosage: UNK
  6. HUMIRA [Suspect]
     Indication: RHEUMATOID ARTHRITIS
     Dosage: 40 MG, Q2WK
     Dates: start: 20101001
  7. LEVETIRACETAM [Concomitant]
     Dosage: 2000 MG, UNK
  8. CLONAZEPAM [Concomitant]
     Dosage: 1 MG, UNK

REACTIONS (6)
  - GASTROOESOPHAGEAL REFLUX DISEASE [None]
  - INSOMNIA [None]
  - JOINT SWELLING [None]
  - DRUG INEFFECTIVE [None]
  - ARTHRITIS [None]
  - ARTHRALGIA [None]
